FAERS Safety Report 4352341-4 (Version None)
Quarter: 2004Q2

REPORT INFORMATION
  Report Type: 
  Country: None (occurrence: None)
  Receive Date: 20040427
  Receipt Date: 20040130
  Transmission Date: 20050107
  Serious: Yes (Hospitalization)
  Sender: FDA-Public Use
  Company Number: WAES 0402USA00053

PATIENT
  Age: 72 Year
  Sex: Female

DRUGS (6)
  1. SINGULAIR [Suspect]
     Indication: ASTHMA
     Dosage: 10 MG/DAILY/PO
     Route: 048
     Dates: start: 19990101
  2. ASTELIN [Concomitant]
  3. ATROVENT [Concomitant]
  4. FLONASE [Concomitant]
  5. FORADIL [Concomitant]
  6. PULMICORT [Concomitant]

REACTIONS (2)
  - ORAL CANDIDIASIS [None]
  - UPPER RESPIRATORY TRACT INFECTION [None]
